FAERS Safety Report 9346710 (Version 1)
Quarter: 2013Q2

REPORT INFORMATION
  Report Type: Spontaneous
  Country: IT (occurrence: IT)
  Receive Date: 20130613
  Receipt Date: 20130613
  Transmission Date: 20140414
  Serious: Yes (Hospitalization)
  Sender: FDA-Public Use
  Company Number: IT-JNJFOC-20130603180

PATIENT
  Age: 15 Year
  Sex: Female

DRUGS (2)
  1. REACTINE+COMPRESSE A RILASCIO PROLUNGATO [Suspect]
     Route: 048
  2. REACTINE+COMPRESSE A RILASCIO PROLUNGATO [Suspect]
     Indication: SEASONAL ALLERGY
     Route: 048
     Dates: start: 20130511, end: 20130519

REACTIONS (1)
  - Rash generalised [Recovered/Resolved]
